FAERS Safety Report 8127821-6 (Version None)
Quarter: 2012Q1

REPORT INFORMATION
  Report Type: 
  Country: None (occurrence: None)
  Receive Date: 20120210
  Receipt Date: 20110628
  Transmission Date: 20120608
  Serious: No
  Sender: FDA-Public Use
  Company Number: US-GLAXOSMITHKLINE-A0934115A

PATIENT
  Sex: Female

DRUGS (1)
  1. PAXIL [Suspect]
     Indication: DEPRESSION
     Route: 065

REACTIONS (6)
  - DECREASED APPETITE [None]
  - PYREXIA [None]
  - HYPERHIDROSIS [None]
  - ANXIETY [None]
  - FEAR [None]
  - NAUSEA [None]
